FAERS Safety Report 11301230 (Version 1)
Quarter: 2015Q3

REPORT INFORMATION
  Report Type: Spontaneous
  Country: US (occurrence: US)
  Receive Date: 20150722
  Receipt Date: 20150722
  Transmission Date: 20151125
  Serious: No
  Sender: FDA-Public Use
  Company Number: US-ELI_LILLY_AND_COMPANY-US201201005436

PATIENT
  Sex: Male

DRUGS (1)
  1. EFFIENT [Suspect]
     Active Substance: PRASUGREL HYDROCHLORIDE
     Indication: STENT PLACEMENT
     Dosage: 10 MG, UNK
     Dates: start: 20110331

REACTIONS (6)
  - Skin discolouration [Unknown]
  - Limb discomfort [Unknown]
  - Oedema peripheral [Unknown]
  - Chest pain [Unknown]
  - Penis disorder [Unknown]
  - Eye movement disorder [Recovered/Resolved]
